FAERS Safety Report 18648155 (Version 1)
Quarter: 2020Q4

REPORT INFORMATION
  Report Type: Spontaneous
  Country: ES (occurrence: ES)
  Receive Date: 20201222
  Receipt Date: 20201222
  Transmission Date: 20210114
  Serious: Yes (Hospitalization)
  Sender: FDA-Public Use
  Company Number: ES-ACCORD-211827

PATIENT
  Age: 82 Year
  Sex: Male

DRUGS (2)
  1. CLOPIDOGREL [Suspect]
     Active Substance: CLOPIDOGREL BISULFATE
     Indication: CORONARY ARTERIAL STENT INSERTION
     Dosage: STRENGTH 75MG,1 TABLET PER DAY
     Route: 048
     Dates: start: 20200729, end: 20200918
  2. ACETYLSALICYLIC ACID ABEX [Interacting]
     Active Substance: ASPIRIN
     Indication: ACUTE MYOCARDIAL INFARCTION
     Dosage: STRENGTH 100MG
     Route: 048
     Dates: start: 20200728

REACTIONS (2)
  - Drug interaction [Unknown]
  - Diverticulum intestinal haemorrhagic [Recovered/Resolved]

NARRATIVE: CASE EVENT DATE: 20200916
